FAERS Safety Report 13919300 (Version 1)
Quarter: 2017Q3

REPORT INFORMATION
  Report Type: Spontaneous
  Country: US (occurrence: US)
  Receive Date: 20170830
  Receipt Date: 20170830
  Transmission Date: 20171127
  Serious: No
  Sender: FDA-Public Use
  Company Number: US-PERRIGO-17US002769

PATIENT
  Age: 73 Year
  Sex: Female
  Weight: 51.25 kg

DRUGS (1)
  1. NICOTINE POLACRILEX [Suspect]
     Active Substance: NICOTINE
     Indication: SMOKING CESSATION THERAPY
     Dosage: 4 MG, SINGLE
     Route: 002
     Dates: start: 20170323, end: 20170323

REACTIONS (1)
  - Burning sensation mucosal [Recovered/Resolved]

NARRATIVE: CASE EVENT DATE: 20170323
